FAERS Safety Report 9388800 (Version 1)
Quarter: 2013Q3

REPORT INFORMATION
  Report Type: Spontaneous
  Country: GB (occurrence: GB)
  Receive Date: 20130708
  Receipt Date: 20130708
  Transmission Date: 20140515
  Serious: Yes (Life-Threatening)
  Sender: FDA-Public Use
  Company Number: PHHY2013GB071418

PATIENT
  Age: 44 Year
  Sex: Male
  Weight: 104 kg

DRUGS (8)
  1. PHENOXYMETHYLPENICILLIN [Suspect]
     Dates: start: 20130626
  2. PROCYCLIDINE [Concomitant]
     Dates: start: 20130304
  3. TRIFLUOPERAZINE [Concomitant]
     Dates: start: 20130304
  4. VENLAFAXINE [Concomitant]
     Dates: start: 20130304
  5. DIAZEPAM [Concomitant]
     Dates: start: 20130501
  6. PARACETAMOL [Concomitant]
     Dates: start: 20130501, end: 20130508
  7. IBUPROFEN [Concomitant]
     Dates: start: 20130513, end: 20130520
  8. DICLOFENAC SODIUM [Concomitant]
     Dates: start: 20130621

REACTIONS (1)
  - Loss of consciousness [Unknown]
